FAERS Safety Report 5720321-X (Version None)
Quarter: 2008Q2

REPORT INFORMATION
  Report Type: 
  Country: None (occurrence: None)
  Receive Date: 20080428
  Receipt Date: 20080423
  Transmission Date: 20081010
  Serious: Yes (Life-Threatening, Hospitalization)
  Sender: FDA-Public Use
  Company Number: UA-ABBOTT-08P-269-0443454-00

PATIENT
  Sex: Male
  Weight: 93 kg

DRUGS (11)
  1. FENOFIBRATE [Suspect]
     Indication: DYSLIPIDAEMIA
     Route: 048
     Dates: start: 20080114, end: 20080311
  2. SIMVASTATIN [Concomitant]
     Indication: DYSLIPIDAEMIA
     Route: 048
     Dates: start: 20080114, end: 20080224
  3. SIMVASTATIN [Concomitant]
     Route: 048
     Dates: start: 20080225, end: 20080311
  4. SIMVASTATIN [Concomitant]
     Route: 048
     Dates: start: 20070618, end: 20070729
  5. SIMVASTATIN [Concomitant]
     Route: 048
     Dates: start: 20070730, end: 20071023
  6. SIMVASTATIN [Concomitant]
     Route: 048
     Dates: start: 20071024, end: 20080113
  7. ENALAPRIL MALEATE [Concomitant]
     Indication: HYPERTENSION
     Route: 048
     Dates: start: 20051215, end: 20080312
  8. HYDROCHLOROTHIAZIDE [Concomitant]
     Indication: HYPERTENSION
     Route: 048
     Dates: start: 20051215
  9. HYDROCHLOROTHIAZIDE [Concomitant]
     Route: 048
     Dates: start: 20051215
  10. EGILOK RETARD [Concomitant]
     Indication: HYPERTENSION
     Route: 048
     Dates: start: 20051215, end: 20080312
  11. EGILOK RETARD [Concomitant]
     Indication: CORONARY ARTERY DISEASE

REACTIONS (3)
  - CHOLECYSTITIS ACUTE [None]
  - PANCREATITIS HAEMORRHAGIC [None]
  - PERITONITIS [None]
